FAERS Safety Report 25739354 (Version 1)
Quarter: 2025Q3

REPORT INFORMATION
  Report Type: Spontaneous
  Country: US (occurrence: US)
  Receive Date: 20250829
  Receipt Date: 20250829
  Transmission Date: 20251021
  Serious: No
  Sender: MERCK SHARP & DOHME LLC
  Company Number: US-009507513-2320402

PATIENT
  Age: 70 Year
  Sex: Female

DRUGS (7)
  1. SIVEXTRO [Suspect]
     Active Substance: TEDIZOLID PHOSPHATE
  2. IMIPENEM [Concomitant]
     Active Substance: IMIPENEM
     Route: 042
  3. OMADACYCLINE [Concomitant]
     Active Substance: OMADACYCLINE
     Route: 048
  4. AMIKACIN [Suspect]
     Active Substance: AMIKACIN
     Route: 042
  5. TIGECYCLINE [Suspect]
     Active Substance: TIGECYCLINE
     Route: 042
  6. LINEZOLID [Suspect]
     Active Substance: LINEZOLID
  7. CEFOXITIN [Suspect]
     Active Substance: CEFOXITIN SODIUM
     Route: 042

REACTIONS (1)
  - Drug intolerance [Unknown]
